FAERS Safety Report 25717794 (Version 2)
Quarter: 2025Q4

REPORT INFORMATION
  Report Type: Spontaneous
  Country: TR (occurrence: TR)
  Receive Date: 20250822
  Receipt Date: 20251003
  Transmission Date: 20260118
  Serious: Yes (Other)
  Sender: MERCK SHARP & DOHME LLC
  Company Number: TR-009507513-2285955

PATIENT
  Age: 34 Year
  Sex: Male
  Weight: 91 kg

DRUGS (1)
  1. TEMOZOLOMIDE [Suspect]
     Active Substance: TEMOZOLOMIDE
     Indication: Brain neoplasm
     Dosage: STRENGTH: 100 MG/5 CAPSULES?FREQUENCY 5 X 300 MG EVERY 28 DAYS
     Route: 048
     Dates: start: 20230601

REACTIONS (5)
  - Nausea [Not Recovered/Not Resolved]
  - Vomiting [Unknown]
  - Product use complaint [Unknown]
  - Taste disorder [Not Recovered/Not Resolved]
  - Inappropriate schedule of product administration [Unknown]

NARRATIVE: CASE EVENT DATE: 20230101
